FAERS Safety Report 20428109 (Version 2)
Quarter: 2022Q1

REPORT INFORMATION
  Report Type: Spontaneous
  Country: CN (occurrence: CN)
  Receive Date: 20220204
  Receipt Date: 20220218
  Transmission Date: 20220424
  Serious: Yes (Hospitalization)
  Sender: FDA-Public Use
  Company Number: CN-ROCHE-3017385

PATIENT
  Age: 63 Year
  Sex: Male
  Weight: 60 kg

DRUGS (6)
  1. RANIBIZUMAB [Suspect]
     Active Substance: RANIBIZUMAB
     Indication: Neovascular age-related macular degeneration
     Dosage: UNK
     Route: 031
     Dates: start: 20210331
  2. RANIBIZUMAB [Suspect]
     Active Substance: RANIBIZUMAB
     Dosage: 0.5 MG (START DATE OF MOST RECENT DOSE OF STUDY DRUG PRIOR TO SAE 04/JAN/2022 3:50 PM)
     Route: 031
     Dates: start: 20210622
  3. RANIBIZUMAB [Suspect]
     Active Substance: RANIBIZUMAB
     Route: 031
     Dates: start: 20220104
  4. METFORMIN HYDROCHLORIDE [Concomitant]
     Active Substance: METFORMIN HYDROCHLORIDE
     Indication: Type 2 diabetes mellitus
     Dosage: UNK
     Dates: start: 202009
  5. ACARBOSE [Concomitant]
     Active Substance: ACARBOSE
     Indication: Type 2 diabetes mellitus
     Dosage: UNK
     Route: 048
     Dates: start: 20200910
  6. GLIMEPIRIDE [Concomitant]
     Active Substance: GLIMEPIRIDE
     Indication: Type 2 diabetes mellitus
     Dosage: UNK
     Route: 048
     Dates: start: 20210211

REACTIONS (1)
  - Cerebrospinal fluid leakage [Recovered/Resolved]

NARRATIVE: CASE EVENT DATE: 20220121
